FAERS Safety Report 7135003-X (Version None)
Quarter: 2010Q4

REPORT INFORMATION
  Report Type: 
  Country: None (occurrence: None)
  Receive Date: 20101203
  Receipt Date: 20101129
  Transmission Date: 20110411
  Serious: Yes (Other)
  Sender: FDA-Public Use
  Company Number: AU-MERCK-1011USA03499

PATIENT
  Sex: Male
  Weight: 75 kg

DRUGS (6)
  1. ZOCOR [Suspect]
     Route: 048
  2. CARVEDILOL [Concomitant]
     Indication: CARDIAC FAILURE CONGESTIVE
     Route: 065
  3. LOCERYL [Concomitant]
     Indication: CARDIAC FAILURE CONGESTIVE
     Route: 065
  4. ALDACTONE [Concomitant]
     Indication: CARDIAC FAILURE CONGESTIVE
     Route: 065
  5. ZYLOPRIM [Concomitant]
     Indication: CARDIAC FAILURE CONGESTIVE
     Route: 065
  6. FUROSEMIDE [Concomitant]
     Indication: CARDIAC FAILURE CONGESTIVE
     Route: 065

REACTIONS (3)
  - BLOOD CREATINE PHOSPHOKINASE INCREASED [None]
  - MYALGIA [None]
  - PARALYSIS [None]
